FAERS Safety Report 17559848 (Version 1)
Quarter: 2020Q1

REPORT INFORMATION
  Report Type: Spontaneous
  Country: CA (occurrence: CA)
  Receive Date: 20200319
  Receipt Date: 20200319
  Transmission Date: 20200409
  Serious: Yes (Other)
  Sender: FDA-Public Use
  Company Number: CA-SA-2020SA067090

PATIENT
  Age: 62 Year
  Sex: Male

DRUGS (14)
  1. RAMIPRIL. [Concomitant]
     Active Substance: RAMIPRIL
     Indication: CARDIAC DISORDER
     Dosage: UNK
  2. PANTOLOC [PANTOPRAZOLE] [Concomitant]
     Active Substance: PANTOPRAZOLE SODIUM
     Indication: DYSPEPSIA
     Dosage: UNK
  3. FLOVENT [Concomitant]
     Active Substance: FLUTICASONE PROPIONATE
     Indication: NASOPHARYNGITIS
  4. PRALUENT [Suspect]
     Active Substance: ALIROCUMAB
     Indication: HYPERCHOLESTEROLAEMIA
  5. NITROGLYCERIN. [Concomitant]
     Active Substance: NITROGLYCERIN
     Indication: CARDIAC DISORDER
     Dosage: UNK
  6. EVINACUMAB. [Concomitant]
     Active Substance: EVINACUMAB
     Indication: HYPERCHOLESTEROLAEMIA
     Dosage: UNK UNK
     Route: 042
     Dates: start: 20181012, end: 20200204
  7. ADVIL COLD AND SINUS PLUS [Concomitant]
     Active Substance: CHLORPHENIRAMINE MALEATE\IBUPROFEN\PSEUDOEPHEDRINE HYDROCHLORIDE
     Indication: NASOPHARYNGITIS
  8. EVOLOCUMAB [Concomitant]
     Active Substance: EVOLOCUMAB
     Indication: TYPE IIA HYPERLIPIDAEMIA
     Dosage: UNK
  9. PRAVASTATIN. [Concomitant]
     Active Substance: PRAVASTATIN
     Indication: TYPE IIA HYPERLIPIDAEMIA
     Dosage: UNK
  10. DRISTAN [OXYMETAZOLINE HYDROCHLORIDE] [Concomitant]
     Indication: PROPHYLAXIS
     Dosage: UNK
  11. ASAPHEN [Concomitant]
     Active Substance: ASPIRIN
     Indication: CARDIAC DISORDER
     Dosage: UNK
  12. ACETAMINOPHEN. [Concomitant]
     Active Substance: ACETAMINOPHEN
     Indication: NASOPHARYNGITIS
  13. CURCUMIN [Concomitant]
     Active Substance: CURCUMIN
     Indication: SUPPLEMENTATION THERAPY
     Dosage: UNK
  14. CENTRUM MEN 50+ [Concomitant]
     Active Substance: MINERALS\VITAMINS
     Indication: SUPPLEMENTATION THERAPY
     Dosage: UNK

REACTIONS (1)
  - Transitional cell carcinoma [Recovering/Resolving]

NARRATIVE: CASE EVENT DATE: 20200306
